FAERS Safety Report 10956105 (Version 1)
Quarter: 2015Q1

REPORT INFORMATION
  Report Type: Spontaneous
  Country: FR (occurrence: None)
  Receive Date: 20150324
  Receipt Date: 20150324
  Transmission Date: 20150721
  Serious: Yes (Death)
  Sender: FDA-Public Use
  Company Number: FK201501334

PATIENT

DRUGS (3)
  1. CARBOPLATIN (CARBOPLATIN) (CARBOPLATIN) [Suspect]
     Active Substance: CARBOPLATIN
     Indication: SQUAMOUS CELL CARCINOMA OF HEAD AND NECK
     Dosage: CYCLICAL
  2. DOCETAXEL (DOCETAXEL) (DOCETAXEL) [Suspect]
     Active Substance: DOCETAXEL
     Indication: SQUAMOUS CELL CARCINOMA OF HEAD AND NECK
     Dosage: CYCLICAL
  3. FLUOROURACIL (FLUOROURACIL) (FLUOROURACIL) [Suspect]
     Active Substance: FLUOROURACIL
     Indication: SQUAMOUS CELL CARCINOMA OF HEAD AND NECK

REACTIONS (1)
  - Death [None]
